FAERS Safety Report 5353565-X (Version None)
Quarter: 2007Q2

REPORT INFORMATION
  Report Type: 
  Country: None (occurrence: None)
  Receive Date: 20070612
  Receipt Date: 20060919
  Transmission Date: 20071010
  Serious: No
  Sender: FDA-Public Use
  Company Number: US-BAUSCH-2006BL005578

PATIENT
  Age: 60 Year
  Sex: Female

DRUGS (2)
  1. GENTAMICIN SULFATE [Suspect]
     Indication: EYE INFECTION BACTERIAL
     Route: 047
     Dates: start: 20060915, end: 20060917
  2. CEPHALEXIN [Concomitant]
     Indication: EYE INFECTION BACTERIAL
     Route: 048
     Dates: start: 20060915

REACTIONS (4)
  - ABNORMAL SENSATION IN EYE [None]
  - ERYTHEMA OF EYELID [None]
  - EYE DISCHARGE [None]
  - EYE PAIN [None]
